FAERS Safety Report 9723540 (Version 1)
Quarter: 2013Q4

REPORT INFORMATION
  Report Type: Spontaneous
  Country: FR (occurrence: FR)
  Receive Date: 20131202
  Receipt Date: 20131202
  Transmission Date: 20140711
  Serious: Yes (Disabling)
  Sender: FDA-Public Use
  Company Number: FR-TEVA-447496ISR

PATIENT
  Sex: Female

DRUGS (1)
  1. ATORVASTATINE TEVA [Suspect]
     Dosage: STARTED TWO YEARS AGO
     Route: 048

REACTIONS (1)
  - Gait disturbance [Not Recovered/Not Resolved]
